FAERS Safety Report 10167208 (Version 2)
Quarter: 2014Q2

REPORT INFORMATION
  Report Type: Spontaneous
  Country: US (occurrence: US)
  Receive Date: 20140512
  Receipt Date: 20140526
  Transmission Date: 20141212
  Serious: No
  Sender: FDA-Public Use
  Company Number: US-PFIZER INC-2014129166

PATIENT
  Age: 64 Year
  Sex: Female
  Weight: 50.34 kg

DRUGS (5)
  1. SERTRALINE HCL [Suspect]
     Indication: ANXIETY
     Dosage: 25 MG, 1X/DAY
     Route: 048
     Dates: start: 20140331, end: 20140405
  2. SERTRALINE HCL [Suspect]
     Dosage: 12.5 MG, ONCE A DAY BY CUTTING 25MG TABLET INTO HALF
     Route: 048
     Dates: start: 20140406, end: 2014
  3. SERTRALINE HCL [Suspect]
     Dosage: 12.5 MG, ALTERNATE DAY
     Route: 048
     Dates: start: 2014
  4. AMITIZA [Concomitant]
     Dosage: 24 UG, 2X/DAY
     Route: 048
  5. AMITIZA [Concomitant]
     Dosage: 24 UG, 1X/DAY
     Route: 048

REACTIONS (10)
  - Insomnia [Recovered/Resolved]
  - Therapeutic response changed [Unknown]
  - Pre-existing condition improved [Unknown]
  - Vertigo [Not Recovered/Not Resolved]
  - Libido decreased [Not Recovered/Not Resolved]
  - Malaise [Not Recovered/Not Resolved]
  - Dizziness [Not Recovered/Not Resolved]
  - Feeling abnormal [Not Recovered/Not Resolved]
  - Nausea [Not Recovered/Not Resolved]
  - Abdominal discomfort [Unknown]
